FAERS Safety Report 5821684-7 (Version None)
Quarter: 2008Q3

REPORT INFORMATION
  Report Type: 
  Country: None (occurrence: None)
  Receive Date: 20080724
  Receipt Date: 20080716
  Transmission Date: 20090109
  Serious: Yes (Death)
  Sender: FDA-Public Use
  Company Number: JP-AVENTIS-200812217JP

PATIENT
  Age: 54 Year
  Sex: Female

DRUGS (2)
  1. DOCETAXEL [Suspect]
     Dates: start: 20050905, end: 20050905
  2. TOREMIFENE [Concomitant]
     Route: 048
     Dates: start: 20050730

REACTIONS (1)
  - PULMONARY INFARCTION [None]
